FAERS Safety Report 13304155 (Version 1)
Quarter: 2017Q1

REPORT INFORMATION
  Report Type: Spontaneous
  Country: US (occurrence: US)
  Receive Date: 20170308
  Receipt Date: 20170308
  Transmission Date: 20170428
  Serious: Yes (Other)
  Sender: FDA-Public Use
  Company Number: US-JNJFOC-20170223517

PATIENT
  Sex: Male

DRUGS (3)
  1. BENADRYL [Suspect]
     Active Substance: DIPHENHYDRAMINE HYDROCHLORIDE
     Indication: MULTIPLE ALLERGIES
     Dosage: TAKE 1 CAPSULES AND THEN KEEP TAKING THEM THROUGHOUT THE DAY (QUANTITY UNSPECIFIED)
     Route: 048
  2. BENADRYL [Suspect]
     Active Substance: DIPHENHYDRAMINE HYDROCHLORIDE
     Indication: MALAISE
     Dosage: TAKE 1 CAPSULES AND THEN KEEP TAKING THEM THROUGHOUT THE DAY (QUANTITY UNSPECIFIED)
     Route: 048
  3. BENADRYL [Suspect]
     Active Substance: DIPHENHYDRAMINE HYDROCHLORIDE
     Indication: SLEEP DISORDER THERAPY
     Dosage: TAKE 1 CAPSULES AND THEN KEEP TAKING THEM THROUGHOUT THE DAY (QUANTITY UNSPECIFIED)
     Route: 048

REACTIONS (6)
  - Mental disorder [Unknown]
  - Tooth loss [Unknown]
  - Product use issue [Unknown]
  - Dependence [Unknown]
  - Depressed mood [Not Recovered/Not Resolved]
  - Dry mouth [Unknown]
